FAERS Safety Report 16088080 (Version 2)
Quarter: 2019Q2

REPORT INFORMATION
  Report Type: Report from Study
  Country: IT (occurrence: IT)
  Receive Date: 20190319
  Receipt Date: 20190401
  Transmission Date: 20190711
  Serious: Yes (Other)
  Sender: FDA-Public Use
  Company Number: IT-ACCORD-113999

PATIENT
  Age: 57 Year
  Sex: Female

DRUGS (2)
  1. TAVOR (LORAZEPAM) [Suspect]
     Active Substance: LORAZEPAM
     Dosage: 2.5 MG TABLETS
     Route: 048
     Dates: start: 20171103, end: 20171103
  2. QUETIAPINE. [Suspect]
     Active Substance: QUETIAPINE
     Route: 048
     Dates: start: 20171103, end: 20171103

REACTIONS (3)
  - Drug abuse [Unknown]
  - Sopor [Recovering/Resolving]
  - Intentional self-injury [Unknown]

NARRATIVE: CASE EVENT DATE: 20171103
